FAERS Safety Report 8321778-0 (Version None)
Quarter: 2012Q2

REPORT INFORMATION
  Report Type: 
  Country: None (occurrence: None)
  Receive Date: 20120430
  Receipt Date: 20120426
  Transmission Date: 20120825
  Serious: Yes (Life-Threatening)
  Sender: FDA-Public Use
  Company Number: DE-B.I. PHARMACEUTICALS,INC./RIDGEFIELD-2012-DE-00817DE

PATIENT
  Sex: Male
  Weight: 54.5 kg

DRUGS (8)
  1. PREDNISOLONE [Concomitant]
     Indication: POLYMYALGIA RHEUMATICA
     Dosage: 5 MG
  2. PRADAXA [Suspect]
     Indication: ATRIAL FIBRILLATION
     Dosage: 220 MG
     Dates: start: 20120211, end: 20120229
  3. PANTOPRAZOLE [Concomitant]
     Dosage: 20 MG
  4. BISOPROLOL FUMARATE [Concomitant]
     Indication: ATRIAL FIBRILLATION
     Dosage: 5 MG
  5. ACTRAPID INSULIN [Concomitant]
  6. GABAPENTIN [Concomitant]
     Dosage: 300 MG
  7. NEXIUM [Concomitant]
     Indication: GASTRITIS
     Dosage: 40 MG
  8. SIMVASTATIN [Concomitant]
     Dosage: 40 MG

REACTIONS (2)
  - LOWER GASTROINTESTINAL HAEMORRHAGE [None]
  - COAGULATION TEST ABNORMAL [None]
